FAERS Safety Report 4620251-0 (Version None)
Quarter: 2005Q1

REPORT INFORMATION
  Report Type: 
  Country: None (occurrence: None)
  Receive Date: 20050321
  Receipt Date: 20050321
  Transmission Date: 20050727
  Serious: Yes (Other)
  Sender: FDA-Public Use
  Company Number: None

PATIENT
  Age: 5 Year
  Sex: Male
  Weight: 22.2263 kg

DRUGS (5)
  1. VALPROIC ACID [Suspect]
     Indication: CONVULSION
     Dosage: 250 MG/5CC BID
     Dates: start: 20041001
  2. VALPROIC ACID [Suspect]
     Indication: CONVULSION
     Dosage: 250 MG/5CC BID
     Dates: start: 20050301
  3. TOPAMAX [Concomitant]
  4. ATIVAN [Concomitant]
  5. . [Concomitant]

REACTIONS (2)
  - EPISTAXIS [None]
  - THROMBOCYTOPENIA [None]
